FAERS Safety Report 6902379-5 (Version None)
Quarter: 2010Q3

REPORT INFORMATION
  Report Type: 
  Country: None (occurrence: None)
  Receive Date: 20100803
  Receipt Date: 20080520
  Transmission Date: 20110219
  Serious: No
  Sender: FDA-Public Use
  Company Number: US-PFIZER INC-2008039978

PATIENT
  Sex: Female
  Weight: 63.5 kg

DRUGS (5)
  1. LYRICA [Suspect]
     Indication: NEURALGIA
     Route: 048
     Dates: start: 20080331
  2. DIURETICS [Concomitant]
  3. ACETYLSALICYLIC ACID SRT [Concomitant]
  4. ATIVAN [Concomitant]
  5. ALL OTHER THERAPEUTIC PRODUCTS [Concomitant]

REACTIONS (4)
  - ALOPECIA [None]
  - DRUG INEFFECTIVE [None]
  - EYE IRRITATION [None]
  - PAIN IN EXTREMITY [None]
